FAERS Safety Report 5824988-7 (Version None)
Quarter: 2008Q3

REPORT INFORMATION
  Report Type: 
  Country: None (occurrence: None)
  Receive Date: 20080728
  Receipt Date: 20080716
  Transmission Date: 20090109
  Serious: Yes (Other)
  Sender: FDA-Public Use
  Company Number: US-PFIZER INC-2008060499

PATIENT
  Sex: Female
  Weight: 63.5 kg

DRUGS (4)
  1. LYRICA [Suspect]
     Indication: FIBROMYALGIA
     Route: 048
     Dates: start: 20080201, end: 20080201
  2. VITAMIN TAB [Concomitant]
  3. CYCLOBENZAPRINE HCL [Concomitant]
  4. TRAZODONE HCL [Concomitant]

REACTIONS (3)
  - DIZZINESS [None]
  - DYSSTASIA [None]
  - EYE DISORDER [None]
